FAERS Safety Report 16677079 (Version 1)
Quarter: 2019Q3

REPORT INFORMATION
  Report Type: Spontaneous
  Country: BR (occurrence: BR)
  Receive Date: 20190807
  Receipt Date: 20190807
  Transmission Date: 20191004
  Serious: Yes (Other)
  Sender: FDA-Public Use
  Company Number: BR-JNJFOC-20190801184

PATIENT
  Age: 62 Year
  Sex: Female

DRUGS (1)
  1. CETONAX [Suspect]
     Active Substance: KETOCONAZOLE
     Indication: DANDRUFF
     Route: 065
     Dates: start: 201810

REACTIONS (1)
  - Scleritis [Not Recovered/Not Resolved]

NARRATIVE: CASE EVENT DATE: 201810
